FAERS Safety Report 8349399-4 (Version None)
Quarter: 2012Q2

REPORT INFORMATION
  Report Type: 
  Country: None (occurrence: None)
  Receive Date: 20120510
  Receipt Date: 20120508
  Transmission Date: 20120825
  Serious: Yes (Other)
  Sender: FDA-Public Use
  Company Number: US-PFIZER INC-2012112399

PATIENT
  Sex: Female
  Weight: 48.5 kg

DRUGS (3)
  1. AMLODIPINE BESYLATE [Suspect]
     Indication: HYPERTENSION
     Dosage: 2.5 MG, DAILY
     Dates: start: 20120319
  2. NORVASC [Suspect]
     Indication: HYPERTENSION
     Dosage: 2.5 MG, DAILY
     Dates: end: 20120301
  3. LEVOTHYROXINE [Concomitant]
     Indication: HYPOTHYROIDISM
     Dosage: 125 UG, DAILY

REACTIONS (3)
  - ABDOMINAL DISCOMFORT [None]
  - COELIAC DISEASE [None]
  - DIARRHOEA [None]
